FAERS Safety Report 24785007 (Version 2)
Quarter: 2025Q1

REPORT INFORMATION
  Report Type: Spontaneous
  Country: US (occurrence: US)
  Receive Date: 20241228
  Receipt Date: 20250109
  Transmission Date: 20250409
  Serious: No
  Sender: AMGEN
  Company Number: US-AMGEN-USASP2024254066

PATIENT
  Age: 77 Year
  Sex: Female

DRUGS (2)
  1. REPATHA [Suspect]
     Active Substance: EVOLOCUMAB
     Indication: Hypercholesterolaemia
     Dosage: 140 MILLIGRAM, Q2WK
     Route: 065
  2. BRILINTA [Concomitant]
     Active Substance: TICAGRELOR

REACTIONS (4)
  - Device difficult to use [Unknown]
  - Drug dose omission by device [Unknown]
  - Injection site mass [Unknown]
  - Injection site bruising [Unknown]

NARRATIVE: CASE EVENT DATE: 20241127
